FAERS Safety Report 10102850 (Version 3)
Quarter: 2014Q3

REPORT INFORMATION
  Report Type: Spontaneous
  Country: US (occurrence: US)
  Receive Date: 20140424
  Receipt Date: 20140915
  Transmission Date: 20150326
  Serious: No
  Sender: FDA-Public Use
  Company Number: US-BRISTOL-MYERS SQUIBB COMPANY-20580957

PATIENT
  Age: 87 Year
  Sex: Male
  Weight: 68.93 kg

DRUGS (3)
  1. WARFARIN SODIUM. [Suspect]
     Active Substance: WARFARIN SODIUM
  2. PLAVIX [Suspect]
     Active Substance: CLOPIDOGREL BISULFATE
  3. ELIQUIS [Suspect]
     Active Substance: APIXABAN
     Indication: ATRIAL FIBRILLATION
     Dosage: INTERRUPTED ON 22APR2014
     Route: 048

REACTIONS (6)
  - Asthenia [Unknown]
  - Arthritis [Unknown]
  - Dizziness [Recovered/Resolved]
  - Myalgia [Unknown]
  - International normalised ratio fluctuation [Unknown]
  - Diarrhoea [Unknown]

NARRATIVE: CASE EVENT DATE: 20140327
